FAERS Safety Report 5662604-8 (Version None)
Quarter: 2008Q1

REPORT INFORMATION
  Report Type: 
  Country: None (occurrence: None)
  Receive Date: 20080221
  Receipt Date: 20070118
  Transmission Date: 20080703
  Serious: Yes (Hospitalization)
  Sender: FDA-Public Use
  Company Number: PHEH2007US01040

PATIENT
  Age: 83 Year
  Sex: Male

DRUGS (2)
  1. DIOVAN [Suspect]
     Indication: HYPERTENSION
     Dates: start: 20050101, end: 20060101
  2. COZAAR [Suspect]
     Dates: start: 20060101

REACTIONS (1)
  - ASTHENIA [None]
